FAERS Safety Report 5885212-2 (Version None)
Quarter: 2008Q3

REPORT INFORMATION
  Report Type: 
  Country: None (occurrence: None)
  Receive Date: 20080915
  Receipt Date: 20080915
  Transmission Date: 20090109
  Serious: Yes (Hospitalization)
  Sender: FDA-Public Use
  Company Number: None

PATIENT
  Sex: Female
  Weight: 61.2356 kg

DRUGS (1)
  1. AMBIEN [Suspect]
     Indication: INITIAL INSOMNIA
     Dosage: 1/2 TO 1 TABLET DAILY PO
     Route: 048
     Dates: start: 20080715, end: 20080905

REACTIONS (26)
  - ABNORMAL DREAMS [None]
  - DIZZINESS [None]
  - DRY MOUTH [None]
  - DYSPHONIA [None]
  - DYSPNOEA [None]
  - EYE SWELLING [None]
  - FATIGUE [None]
  - GASTRIC DISORDER [None]
  - HYPOAESTHESIA [None]
  - ILL-DEFINED DISORDER [None]
  - INSOMNIA [None]
  - MIGRAINE [None]
  - MUSCULOSKELETAL PAIN [None]
  - NERVOUSNESS [None]
  - NO THERAPEUTIC RESPONSE [None]
  - PAIN [None]
  - PALPITATIONS [None]
  - PANIC ATTACK [None]
  - PARAESTHESIA [None]
  - PRURITUS [None]
  - RASH [None]
  - SKIN DISORDER [None]
  - SWELLING FACE [None]
  - SYNCOPE [None]
  - TREMOR [None]
  - YAWNING [None]
